FAERS Safety Report 5269339-4 (Version None)
Quarter: 2007Q1

REPORT INFORMATION
  Report Type: 
  Country: None (occurrence: None)
  Receive Date: 20070319
  Receipt Date: 20070307
  Transmission Date: 20070707
  Serious: Yes (Other)
  Sender: FDA-Public Use
  Company Number: JP-PFIZER INC-2007018270

PATIENT
  Sex: Female

DRUGS (1)
  1. MINIPRESS [Suspect]
     Indication: HYPERTENSION
     Route: 048
     Dates: start: 20060524, end: 20060601

REACTIONS (1)
  - HYPERTENSION [None]
